FAERS Safety Report 12308219 (Version 3)
Quarter: 2016Q2

REPORT INFORMATION
  Report Type: Report from Study
  Country: BR (occurrence: BR)
  Receive Date: 20160426
  Receipt Date: 20160629
  Transmission Date: 20160815
  Serious: Yes (Hospitalization)
  Sender: FDA-Public Use
  Company Number: PHHY2016BR055976

PATIENT
  Age: 40 Year
  Sex: Female
  Weight: 57 kg

DRUGS (3)
  1. EXJADE [Suspect]
     Active Substance: DEFERASIROX
     Dosage: 500 MG, UNK
     Route: 048
  2. EXJADE [Suspect]
     Active Substance: DEFERASIROX
     Indication: SICKLE CELL ANAEMIA
     Dosage: 15 MG/KG, QD (1 DISPERSIBLE TABLET OF 500 AND 1 TABLET OF 250 MG)
     Route: 048
     Dates: start: 201511
  3. EXJADE [Suspect]
     Active Substance: DEFERASIROX
     Dosage: 1000 MG, UNK
     Route: 048

REACTIONS (11)
  - Venous thrombosis [Unknown]
  - Poor peripheral circulation [Unknown]
  - Anxiety [Unknown]
  - Sickle cell anaemia with crisis [Unknown]
  - Nervousness [Unknown]
  - Pain [Unknown]
  - Migraine [Unknown]
  - Hyperphagia [Unknown]
  - Serum ferritin increased [Unknown]
  - Weight increased [Unknown]
  - Malaise [Unknown]

NARRATIVE: CASE EVENT DATE: 201604
